FAERS Safety Report 25651004 (Version 1)
Quarter: 2025Q3

REPORT INFORMATION
  Report Type: Spontaneous
  Country: BR (occurrence: BR)
  Receive Date: 20250806
  Receipt Date: 20250806
  Transmission Date: 20251020
  Serious: Yes (Other)
  Sender: BIOMARIN
  Company Number: BR-BIOMARINAP-BR-2025-163348

PATIENT
  Age: 32 Year
  Sex: Female

DRUGS (1)
  1. VIMIZIM [Suspect]
     Active Substance: ELOSULFASE ALFA
     Indication: Mucopolysaccharidosis IV
     Dosage: UNK, QW
     Dates: start: 202305

REACTIONS (7)
  - Pneumonia [Unknown]
  - Deformity thorax [Unknown]
  - Respiratory disorder [Unknown]
  - Respiratory distress [Recovering/Resolving]
  - Chronic respiratory disease [Unknown]
  - Tracheal stenosis [Unknown]
  - Gait inability [Unknown]

NARRATIVE: CASE EVENT DATE: 20250112
